FAERS Safety Report 7718823-X (Version None)
Quarter: 2011Q3

REPORT INFORMATION
  Report Type: 
  Country: None (occurrence: None)
  Receive Date: 20110830
  Receipt Date: 20110822
  Transmission Date: 20111222
  Serious: Yes (Death, Life-Threatening)
  Sender: FDA-Public Use
  Company Number: AU-ACTELION-A-CH2011-52542

PATIENT
  Sex: Female
  Weight: 39 kg

DRUGS (2)
  1. TRACLEER [Suspect]
     Dosage: 62.5 MG, BID
     Route: 048
     Dates: start: 20090824, end: 20110223
  2. TRACLEER [Suspect]
     Indication: PULMONARY ARTERIAL HYPERTENSION
     Dosage: 125 MG, BID
     Route: 048
     Dates: start: 20110224, end: 20110807

REACTIONS (2)
  - PULMONARY ARTERIAL HYPERTENSION [None]
  - DISEASE PROGRESSION [None]
